FAERS Safety Report 16160644 (Version 1)
Quarter: 2019Q2

REPORT INFORMATION
  Report Type: Spontaneous
  Country: FR (occurrence: FR)
  Receive Date: 20190405
  Receipt Date: 20190405
  Transmission Date: 20190711
  Serious: Yes (Life-Threatening)
  Sender: FDA-Public Use
  Company Number: FR-SUN PHARMACEUTICAL INDUSTRIES LTD-2019RR-204167

PATIENT
  Age: 38 Year
  Sex: Female
  Weight: 65 kg

DRUGS (5)
  1. OVITRELLE 250 MICROGRAMMES, POUDRE ET SOLVANT POUR SOLUTION INJECTABLE [Suspect]
     Active Substance: CHORIOGONADOTROPIN ALFA
     Indication: CONTROLLED OVARIAN STIMULATION
     Dosage: 1 DOSAGE FORM, DAILY
     Route: 058
     Dates: start: 201806
  2. PROGESTAN [Suspect]
     Active Substance: PROGESTERONE
     Indication: CONTROLLED OVARIAN STIMULATION
     Dosage: 2 DOSAGE FORM, DAILY
     Route: 067
     Dates: start: 201806, end: 201807
  3. FYREMADEL 0,25 MG/0,5 ML SOLUTION INJECTABLE EN SERINGUE PR?-REMPLIE [Suspect]
     Active Substance: GANIRELIX ACETATE
     Indication: CONTROLLED OVARIAN STIMULATION
     Dosage: 1 DOSAGE FORM, DAILY
     Route: 058
     Dates: start: 201806
  4. OVALEAP 900 UI/1,5 ML, SOLUTION INJECTABLE [Suspect]
     Active Substance: FOLLITROPIN
     Indication: IN VITRO FERTILISATION
     Dosage: 175 INTERNATIONAL UNIT, DAILY
     Route: 058
     Dates: start: 20180617, end: 20180625
  5. PROVAMES 2 MG, COMPRIME PELLICULE [Suspect]
     Active Substance: ESTRADIOL
     Indication: CONTROLLED OVARIAN STIMULATION
     Dosage: 2 DOSAGE FORM, DAILY
     Route: 048
     Dates: start: 201806

REACTIONS (2)
  - Meningioma [Recovered/Resolved]
  - Epilepsy [Recovered/Resolved]

NARRATIVE: CASE EVENT DATE: 20181108
